FAERS Safety Report 18880482 (Version 2)
Quarter: 2021Q1

REPORT INFORMATION
  Report Type: Spontaneous
  Country: JP (occurrence: JP)
  Receive Date: 20210211
  Receipt Date: 20210223
  Transmission Date: 20210420
  Serious: Yes (Death)
  Sender: FDA-Public Use
  Company Number: JP-JNJFOC-20210219802

PATIENT
  Age: 62 Year
  Sex: Female

DRUGS (1)
  1. TRABECTEDIN [Suspect]
     Active Substance: TRABECTEDIN
     Indication: ANGIOSARCOMA
     Dosage: A 24?HOUR INFUSION, 8 CYCLES
     Route: 041

REACTIONS (1)
  - Putamen haemorrhage [Fatal]
